FAERS Safety Report 8068218-7 (Version None)
Quarter: 2012Q1

REPORT INFORMATION
  Report Type: 
  Country: None (occurrence: None)
  Receive Date: 20120124
  Receipt Date: 20111005
  Transmission Date: 20120608
  Serious: No
  Sender: FDA-Public Use
  Company Number: US-AMGEN-USASP2011051500

PATIENT
  Sex: Female

DRUGS (2)
  1. MIRAPEX [Concomitant]
  2. PROLIA [Suspect]
     Indication: OSTEOPOROSIS POSTMENOPAUSAL
     Dates: start: 20110901, end: 20110101

REACTIONS (4)
  - BALANCE DISORDER [None]
  - ASTHENIA [None]
  - DIZZINESS [None]
  - SLEEP DISORDER [None]
